FAERS Safety Report 6955029-6 (Version None)
Quarter: 2010Q3

REPORT INFORMATION
  Report Type: 
  Country: None (occurrence: None)
  Receive Date: 20100830
  Receipt Date: 20100819
  Transmission Date: 20110219
  Serious: Yes (Hospitalization)
  Sender: FDA-Public Use
  Company Number: FR-NOVOPROD-261211

PATIENT
  Sex: Female

DRUGS (5)
  1. INSULATARD FLEXPEN [Suspect]
     Indication: TYPE 1 DIABETES MELLITUS
     Route: 058
     Dates: start: 20051201
  2. ACTRAPID [Suspect]
     Indication: TYPE 1 DIABETES MELLITUS
     Route: 058
     Dates: start: 20060101
  3. DEPAKENE [Suspect]
     Indication: EPILEPSY
     Dosage: 1500 MG, QD
     Route: 048
     Dates: start: 19900101, end: 20050101
  4. LANTUS [Suspect]
     Indication: TYPE 1 DIABETES MELLITUS
     Dosage: UNK, UNK
     Dates: start: 19950101, end: 20051201
  5. HUMALOG [Concomitant]
     Indication: TYPE 1 DIABETES MELLITUS
     Dates: end: 20051201

REACTIONS (4)
  - ABORTION INDUCED [None]
  - DRUG EXPOSURE DURING PREGNANCY [None]
  - POLYHYDRAMNIOS [None]
  - THREATENED LABOUR [None]
